FAERS Safety Report 21692757 (Version 2)
Quarter: 2022Q4

REPORT INFORMATION
  Report Type: Report from Study
  Country: ES (occurrence: ES)
  Receive Date: 20221207
  Receipt Date: 20221220
  Transmission Date: 20230113
  Serious: Yes (Hospitalization)
  Sender: FDA-Public Use
  Company Number: ES-SA-SAC20221205000884

PATIENT
  Age: 65 Year
  Sex: Male

DRUGS (5)
  1. ISATUXIMAB [Suspect]
     Active Substance: ISATUXIMAB
  2. IBERDOMIDE [Concomitant]
     Active Substance: IBERDOMIDE
  3. BORTEZOMIB [Concomitant]
     Active Substance: BORTEZOMIB
  4. LENALIDOMIDE [Concomitant]
     Active Substance: LENALIDOMIDE
  5. DEXAMETHASONE [Concomitant]
     Active Substance: DEXAMETHASONE

REACTIONS (1)
  - Pyrexia [Not Recovered/Not Resolved]

NARRATIVE: CASE EVENT DATE: 20221128
